FAERS Safety Report 11053672 (Version 2)
Quarter: 2015Q2

REPORT INFORMATION
  Report Type: Spontaneous
  Country: US (occurrence: US)
  Receive Date: 20150421
  Receipt Date: 20150514
  Transmission Date: 20150821
  Serious: Yes (Other)
  Sender: FDA-Public Use
  Company Number: US-LUNDBECK-DKLU1111339

PATIENT
  Age: 71 Year
  Sex: Male

DRUGS (2)
  1. NORTHERA [Suspect]
     Active Substance: DROXIDOPA
     Indication: PRODUCT USED FOR UNKNOWN INDICATION
     Route: 048
     Dates: start: 20150401, end: 20150401
  2. NORTHERA [Suspect]
     Active Substance: DROXIDOPA
     Route: 048
     Dates: end: 20150429

REACTIONS (6)
  - Dizziness [Unknown]
  - Hypertension [Unknown]
  - Blood pressure decreased [Unknown]
  - Activities of daily living impaired [Unknown]
  - Diarrhoea [Unknown]
  - Disorientation [Unknown]

NARRATIVE: CASE EVENT DATE: 20150401
